FAERS Safety Report 25388251 (Version 2)
Quarter: 2025Q2

REPORT INFORMATION
  Report Type: Spontaneous
  Country: ES (occurrence: ES)
  Receive Date: 20250603
  Receipt Date: 20250630
  Transmission Date: 20250716
  Serious: No
  Sender: BIOCODEX
  Company Number: ES-BIOCODEX2-2025000774

PATIENT
  Sex: Male

DRUGS (5)
  1. STIRIPENTOL [Suspect]
     Active Substance: STIRIPENTOL
     Indication: Epileptic encephalopathy
     Route: 065
     Dates: start: 202208, end: 202403
  2. VALPROATE [Concomitant]
     Active Substance: VALPROIC ACID
     Indication: Epileptic encephalopathy
     Route: 065
  3. CLOBAZAM [Concomitant]
     Active Substance: CLOBAZAM
     Indication: Epileptic encephalopathy
     Route: 065
  4. FENFLURAMINE [Concomitant]
     Active Substance: FENFLURAMINE
     Indication: Epileptic encephalopathy
     Route: 065
     Dates: start: 202401
  5. CANNABIDIOL\HERBALS [Concomitant]
     Active Substance: CANNABIDIOL\HERBALS
     Indication: Epileptic encephalopathy
     Route: 065
     Dates: start: 202403

REACTIONS (3)
  - Abnormal behaviour [Unknown]
  - Somnolence [Unknown]
  - Off label use [Unknown]
